FAERS Safety Report 13563153 (Version 1)
Quarter: 2017Q2

REPORT INFORMATION
  Report Type: Spontaneous
  Country: US (occurrence: US)
  Receive Date: 20170518
  Receipt Date: 20170518
  Transmission Date: 20170830
  Serious: No
  Sender: FDA-Public Use
  Company Number: None

PATIENT
  Age: 50 Year
  Sex: Male

DRUGS (1)
  1. BOTOX [Suspect]
     Active Substance: ONABOTULINUMTOXINA
     Indication: MIGRAINE WITHOUT AURA
     Dosage: 200 UNITS Q3M IM
     Route: 030
     Dates: start: 20161110

REACTIONS (4)
  - Injection site pain [None]
  - Disorientation [None]
  - Facial paralysis [None]
  - Confusional state [None]

NARRATIVE: CASE EVENT DATE: 20170208
